FAERS Safety Report 8453015-0 (Version None)
Quarter: 2012Q2

REPORT INFORMATION
  Report Type: 
  Country: None (occurrence: None)
  Receive Date: 20120620
  Receipt Date: 20120518
  Transmission Date: 20120825
  Serious: No
  Sender: FDA-Public Use
  Company Number: US-VERTEX PHARMACEUTICALS INC.-AE-2012-006479

PATIENT
  Sex: Female
  Weight: 59.02 kg

DRUGS (9)
  1. INCIVEK [Suspect]
     Indication: HEPATITIS C
     Route: 048
     Dates: start: 20120428
  2. PEGASYS [Concomitant]
     Indication: HEPATITIS C
     Route: 058
     Dates: start: 20120427
  3. RIBASPHERE [Concomitant]
     Indication: HEPATITIS C
     Route: 048
     Dates: start: 20120428
  4. HYDROCHLOROTHIAZIDE [Concomitant]
     Indication: HYPERTENSION
     Route: 048
  5. MULTI-VITAMIN [Concomitant]
     Indication: MEDICAL DIET
     Route: 048
  6. ASPIRIN [Concomitant]
     Indication: ANTICOAGULANT THERAPY
     Route: 048
  7. QUINAPRIL [Concomitant]
     Indication: HYPERTENSION
     Route: 048
  8. COREG [Concomitant]
     Indication: HYPERTENSION
     Route: 048
  9. VITAMIN B COMPLEX CAP [Concomitant]
     Indication: MEDICAL DIET
     Route: 048

REACTIONS (4)
  - NAUSEA [None]
  - PERIORBITAL OEDEMA [None]
  - ABDOMINAL DISCOMFORT [None]
  - RASH GENERALISED [None]
